FAERS Safety Report 25687925 (Version 1)
Quarter: 2025Q3

REPORT INFORMATION
  Report Type: Report from Study
  Country: US (occurrence: US)
  Receive Date: 20250817
  Receipt Date: 20250817
  Transmission Date: 20251020
  Serious: Yes (Other)
  Sender: ABBVIE
  Company Number: US-ABBVIE-6417109

PATIENT
  Age: 39 Year
  Sex: Female
  Weight: 88.45 kg

DRUGS (2)
  1. LUPRON [Suspect]
     Active Substance: LEUPROLIDE ACETATE
     Indication: Haemorrhage
     Dosage: FORM STRENGTH: 11.25 MILLIGRAM, NDC# 00074366303.
     Route: 030
     Dates: start: 202505
  2. LUPRON [Suspect]
     Active Substance: LEUPROLIDE ACETATE
     Indication: Uterine leiomyoma

REACTIONS (4)
  - Thrombosis [Unknown]
  - Haematochezia [Unknown]
  - Scar [Unknown]
  - Intestinal fibrosis [Unknown]

NARRATIVE: CASE EVENT DATE: 20250101
